FAERS Safety Report 25332093 (Version 1)
Quarter: 2025Q2

REPORT INFORMATION
  Report Type: Spontaneous
  Country: US (occurrence: US)
  Receive Date: 20250519
  Receipt Date: 20250519
  Transmission Date: 20250717
  Serious: No
  Sender: MERCK SHARP & DOHME LLC
  Company Number: US-009507513-2282592

PATIENT
  Age: 93 Year
  Sex: Female

DRUGS (3)
  1. KEYTRUDA [Suspect]
     Active Substance: PEMBROLIZUMAB
     Indication: Skin cancer
     Route: 042
     Dates: start: 201310, end: 2023
  2. ADVIL [Concomitant]
     Active Substance: IBUPROFEN
  3. PENICILLIN [Concomitant]
     Active Substance: PENICILLIN

REACTIONS (3)
  - Pelvic mass [Not Recovered/Not Resolved]
  - Pain [Not Recovered/Not Resolved]
  - Product use issue [Unknown]
